FAERS Safety Report 21088166 (Version 4)
Quarter: 2022Q3

REPORT INFORMATION
  Report Type: Spontaneous
  Country: ES (occurrence: ES)
  Receive Date: 20220715
  Receipt Date: 20220926
  Transmission Date: 20221027
  Serious: Yes (Other)
  Sender: FDA-Public Use
  Company Number: ES-AUROBINDO-AUR-APL-2022-024630

PATIENT
  Age: 52 Year
  Sex: Male

DRUGS (34)
  1. QUETIAPINE [Interacting]
     Active Substance: QUETIAPINE
     Indication: Antipsychotic therapy
     Dosage: 300 MILLIGRAM,2 TIMES DAY(EVERY 12 HR),300 MG/12H
     Route: 065
     Dates: start: 20170426
  2. QUETIAPINE [Interacting]
     Active Substance: QUETIAPINE
     Indication: Schizophrenia
  3. FENOFIBRATE [Suspect]
     Active Substance: FENOFIBRATE
     Indication: Product used for unknown indication
     Dosage: UNK
     Route: 065
  4. DARUNAVIR [Interacting]
     Active Substance: DARUNAVIR
     Indication: HIV infection
     Dosage: (600 MILLIGRAM EVERY 12 HOUR), 600MG/12H
     Route: 065
     Dates: start: 20100824
  5. LORMETAZEPAM [Concomitant]
     Active Substance: LORMETAZEPAM
     Indication: Insomnia
     Dosage: 2 MILLIGRAM,ONCE A DAY(EVERY 24 HOUR)2MG /24H
     Route: 065
     Dates: start: 20171216
  6. ZOLPIDEM [Concomitant]
     Active Substance: ZOLPIDEM TARTRATE
     Indication: Insomnia
     Dosage: 10 MILLIGRAM,ONCE A DAY (EVERY 24 HOUR),10MG/24H
     Route: 065
     Dates: start: 20190313
  7. OMEPRAZOLE [Concomitant]
     Active Substance: OMEPRAZOLE
     Indication: Gastric ulcer
     Dosage: 40 MILLIGRAM,ONCE A DAY( EVERY 24 HOUR),40MG/24H
     Route: 065
     Dates: start: 20191127
  8. OMEPRAZOLE [Concomitant]
     Active Substance: OMEPRAZOLE
     Indication: Product used for unknown indication
  9. CLORAZEPIC ACID [Concomitant]
     Active Substance: CLORAZEPIC ACID
     Indication: Anxiolytic therapy
     Dosage: 15 MILLIGRAM, 4.5  HOURS,15 MG/4.5H
     Route: 065
     Dates: start: 20190221
  10. CLORAZEPIC ACID [Concomitant]
     Active Substance: CLORAZEPIC ACID
     Indication: Anxiety
  11. ETRAVIRINE [Concomitant]
     Active Substance: ETRAVIRINE
     Indication: HIV infection
     Dosage: 200 MILLIGRAM,ONCE A DAY(EVERY 24 HOUR)
     Route: 065
     Dates: start: 20140527
  12. GABAPENTIN [Concomitant]
     Active Substance: GABAPENTIN
     Indication: Analgesic therapy
     Dosage: 600 MILLIGRAM,3 TIMES A DAY(EVERY 8 HOUR)600MG/8H
     Route: 065
     Dates: start: 20211015
  13. GABAPENTIN [Concomitant]
     Active Substance: GABAPENTIN
     Indication: Pain
  14. GABAPENTIN [Concomitant]
     Active Substance: GABAPENTIN
     Indication: Product used for unknown indication
  15. INSULIN ASPART [Concomitant]
     Active Substance: INSULIN ASPART
     Indication: Diabetes mellitus
     Dosage: 10 IU, 3 TIMES A DAY (EVERY 8 HOUR),10 IU/8H
     Route: 065
     Dates: start: 20200707
  16. INSULIN ASPART [Concomitant]
     Active Substance: INSULIN ASPART
     Indication: Metabolic syndrome
  17. INSULIN GLARGINE [Concomitant]
     Active Substance: INSULIN GLARGINE
     Indication: Diabetes mellitus
     Dosage: 60 IU, ONCE A DAY (EVERY 24 HOUR),600IU/24H
     Route: 065
     Dates: start: 20190527
  18. INSULIN GLARGINE [Concomitant]
     Active Substance: INSULIN GLARGINE
     Indication: Metabolic syndrome
  19. DULAGLUTIDE [Concomitant]
     Active Substance: DULAGLUTIDE
     Indication: Diabetes mellitus
     Dosage: 1.5 MILLIGRAM, QW, 1.5 MG/7D
     Route: 065
     Dates: start: 20190529
  20. DULAGLUTIDE [Concomitant]
     Active Substance: DULAGLUTIDE
     Indication: Metabolic syndrome
  21. FENOFIBRATE [Concomitant]
     Active Substance: FENOFIBRATE
     Indication: Lipids decreased
     Dosage: 145 MILLIGRAM,ONCE A DAY(EVERY 24 HOUR)
     Route: 065
     Dates: start: 20200420
  22. FENOFIBRATE [Concomitant]
     Active Substance: FENOFIBRATE
     Indication: Hyperlipidaemia
  23. FENOFIBRATE [Concomitant]
     Active Substance: FENOFIBRATE
     Indication: Metabolic syndrome
  24. ACETAMINOPHEN [Concomitant]
     Active Substance: ACETAMINOPHEN
     Indication: Analgesic drug level
     Dosage: 1 GRAM, 2 TIMES A DAY; (1 GRAM EVERY 12 HOUR)
     Route: 065
     Dates: start: 20210721
  25. ACETAMINOPHEN [Concomitant]
     Active Substance: ACETAMINOPHEN
     Indication: Pain
     Dosage: 1 GRAM, BID (1 GRAM EVERY 12 HOUR)
     Route: 065
     Dates: start: 20210721
  26. ACETAMINOPHEN [Concomitant]
     Active Substance: ACETAMINOPHEN
     Indication: Product used for unknown indication
  27. ROSUVASTATIN [Concomitant]
     Active Substance: ROSUVASTATIN
     Indication: Lipids decreased
     Dosage: 5 MILLIGRAM,ONCE A DAY(EVERY 24 HOUR),5MG/24H
     Route: 065
     Dates: start: 20180511
  28. ROSUVASTATIN [Concomitant]
     Active Substance: ROSUVASTATIN
     Indication: Hyperlipidaemia
  29. ROSUVASTATIN [Concomitant]
     Active Substance: ROSUVASTATIN
     Indication: Metabolic syndrome
  30. METAMIZOLE [Concomitant]
     Active Substance: METAMIZOLE
     Indication: Analgesic therapy
     Dosage: 575 MILLIGRAM, 3 TIMES A DAY
     Route: 065
     Dates: start: 20210705
  31. METAMIZOLE [Concomitant]
     Active Substance: METAMIZOLE
     Indication: Pain
     Dosage: 575 MILLIGRAM, Q8H (575 MILLIGRAM EVERY 8 HOUR)
     Route: 065
     Dates: start: 20210707
  32. METAMIZOLE [Concomitant]
     Active Substance: METAMIZOLE
     Indication: Product used for unknown indication
  33. LOSARTAN [Concomitant]
     Active Substance: LOSARTAN
     Indication: Hypertension
     Dosage: 100 MILLIGRAM,ONCE A DAY(EVERY 24 HOUR,100MG/24H)
     Route: 065
     Dates: start: 20181013
  34. LOSARTAN [Concomitant]
     Active Substance: LOSARTAN
     Indication: Metabolic syndrome

REACTIONS (7)
  - Tachycardia [Recovered/Resolved]
  - Confusional state [Recovered/Resolved]
  - Agitation [Recovered/Resolved]
  - Drug interaction [Unknown]
  - Nervousness [Recovered/Resolved]
  - Restlessness [Recovered/Resolved]
  - Insomnia [Recovered/Resolved]
